FAERS Safety Report 5926083-5 (Version None)
Quarter: 2008Q4

REPORT INFORMATION
  Report Type: 
  Country: None (occurrence: None)
  Receive Date: 20081016
  Receipt Date: 20081003
  Transmission Date: 20090506
  Serious: Yes (Death, Life-Threatening)
  Sender: FDA-Public Use
  Company Number: 2008EU002122

PATIENT
  Age: 23 Year
  Sex: Female

DRUGS (3)
  1. PROGRAF [Suspect]
     Indication: LIVER TRANSPLANT
     Dosage: 5 MG, BID, 3 MG, BID
     Dates: start: 20080424
  2. CELLCEPT [Concomitant]
  3. CORTICOSTEROIDS [Concomitant]

REACTIONS (7)
  - CEREBRAL HAEMORRHAGE [None]
  - CONVULSION [None]
  - DRUG INTOLERANCE [None]
  - ENCEPHALOPATHY [None]
  - EPILEPSY [None]
  - LIVER TRANSPLANT REJECTION [None]
  - SEPSIS [None]
